FAERS Safety Report 18819699 (Version 1)
Quarter: 2021Q1

REPORT INFORMATION
  Report Type: Report from Study
  Country: None (occurrence: US)
  Receive Date: 20210202
  Receipt Date: 20210202
  Transmission Date: 20210419
  Serious: Yes (Hospitalization, Other)
  Sender: FDA-Public Use
  Company Number: US-ABBVIE-20K-163-3659263-00

PATIENT
  Sex: Male
  Weight: 108.96 kg

DRUGS (2)
  1. COVID?19 VACCINE NOS. [Concomitant]
     Active Substance: COVID-19 VACCINE NOS
     Indication: COVID-19 IMMUNISATION
     Route: 030
  2. HUMIRA [Suspect]
     Active Substance: ADALIMUMAB
     Indication: PSORIASIS
     Route: 058
     Dates: start: 2019, end: 2019

REACTIONS (6)
  - Hepatic cirrhosis [Recovering/Resolving]
  - Skin induration [Not Recovered/Not Resolved]
  - Ulcer haemorrhage [Recovered/Resolved]
  - Splenic rupture [Recovered/Resolved]
  - COVID-19 [Recovered/Resolved]
  - Hypotension [Unknown]

NARRATIVE: CASE EVENT DATE: 2019
